FAERS Safety Report 9566506 (Version 1)
Quarter: 2013Q3

REPORT INFORMATION
  Report Type: Spontaneous
  Country: SE (occurrence: SE)
  Receive Date: 20130930
  Receipt Date: 20130930
  Transmission Date: 20140515
  Serious: Yes (Other)
  Sender: FDA-Public Use
  Company Number: SE-SANTEN INC.-INC-13-000245

PATIENT
  Age: 34 Year
  Sex: Female

DRUGS (1)
  1. OFTAQUIX [Suspect]
     Indication: EYE INFECTION BACTERIAL
     Route: 061
     Dates: start: 20130816, end: 20130817

REACTIONS (2)
  - Pharyngeal oedema [Recovered/Resolved]
  - Hypersensitivity [Recovered/Resolved]
